APPROVED DRUG PRODUCT: LEVOMILNACIPRAN HYDROCHLORIDE
Active Ingredient: LEVOMILNACIPRAN HYDROCHLORIDE
Strength: EQ 120MG BASE
Dosage Form/Route: CAPSULE, EXTENDED RELEASE;ORAL
Application: A210732 | Product #004
Applicant: HIKMA PHARMACEUTICALS USA INC
Approved: Nov 5, 2020 | RLD: No | RS: No | Type: DISCN